FAERS Safety Report 4560032-X (Version None)
Quarter: 2005Q1

REPORT INFORMATION
  Report Type: 
  Country: None (occurrence: None)
  Receive Date: 20050125
  Receipt Date: 20050113
  Transmission Date: 20050727
  Serious: Yes (Other)
  Sender: FDA-Public Use
  Company Number: US-JNJFOC-20050103411

PATIENT
  Sex: Female
  Weight: 71.67 kg

DRUGS (14)
  1. INFLIXIMAB [Suspect]
     Indication: RHEUMATOID ARTHRITIS
     Route: 042
  2. CELEBREX [Concomitant]
  3. NEURONTIN [Concomitant]
  4. FOLIC ACID [Concomitant]
  5. ULTRACET [Concomitant]
     Dosage: AS NEEDED
  6. LORAZEPAM [Concomitant]
     Dosage: TWICE DAILY AS NEEDED
  7. ASPIRIN [Concomitant]
  8. METHOTREXATE [Concomitant]
  9. HUMIRA [Concomitant]
  10. FOSAMAX [Concomitant]
  11. CALCIUM GLUCONATE [Concomitant]
  12. MSM [Concomitant]
  13. CO-Q-10 [Concomitant]
  14. CHROMIUM PICOLINATE [Concomitant]
     Dosage: DAILY

REACTIONS (1)
  - SKIN CANCER [None]
